FAERS Safety Report 12726147 (Version 2)
Quarter: 2016Q4

REPORT INFORMATION
  Report Type: Spontaneous
  Country: US (occurrence: US)
  Receive Date: 20160908
  Receipt Date: 20161010
  Transmission Date: 20170207
  Serious: No
  Sender: FDA-Public Use
  Company Number: US-GLAXOSMITHKLINE-US2016128404

PATIENT
  Age: 61 Year
  Sex: Female

DRUGS (1)
  1. PREVACID 24 HR [Suspect]
     Active Substance: LANSOPRAZOLE
     Indication: DYSPEPSIA
     Dosage: UNK, 1 OR 2 PILLS A DAY FOR YEARS
     Route: 048

REACTIONS (5)
  - Drug ineffective [Unknown]
  - Incorrect drug administration duration [Unknown]
  - Product quality issue [Unknown]
  - Dysgeusia [Recovered/Resolved]
  - Incorrect dose administered [Unknown]

NARRATIVE: CASE EVENT DATE: 20160830
